FAERS Safety Report 23952181 (Version 1)
Quarter: 2024Q2

REPORT INFORMATION
  Report Type: Spontaneous
  Country: US (occurrence: None)
  Receive Date: 20240607
  Receipt Date: 20240607
  Transmission Date: 20240716
  Serious: No
  Sender: FDA-Public Use
  Company Number: None

PATIENT
  Sex: Female
  Weight: 86.18 kg

DRUGS (11)
  1. VYNDAMAX [Suspect]
     Active Substance: TAFAMIDIS
     Indication: Product used for unknown indication
     Dosage: OTHER QUANTITY : 1 PILL;?FREQUENCY : DAILY;?
     Route: 048
     Dates: start: 20230501, end: 202307
  2. DEVICE [Concomitant]
     Active Substance: DEVICE
  3. AMIODARONE [Concomitant]
     Active Substance: AMIODARONE
  4. FUROSEMIDE [Concomitant]
     Active Substance: FUROSEMIDE
  5. LEVOTHYRODINE [Concomitant]
  6. METOPROLOL [Concomitant]
     Active Substance: METOPROLOL
  7. XARELTO [Concomitant]
     Active Substance: RIVAROXABAN
  8. BC (ASPIRIN\CAFFEINE) [Concomitant]
     Active Substance: ASPIRIN\CAFFEINE
  9. MULTI [Concomitant]
  10. D [Concomitant]
  11. MAGNESIUM [Concomitant]
     Active Substance: MAGNESIUM

REACTIONS (6)
  - Sinusitis [None]
  - Diarrhoea [None]
  - Hyperhidrosis [None]
  - Pneumonia [None]
  - Therapy cessation [None]
  - Drug ineffective [None]

NARRATIVE: CASE EVENT DATE: 20240101
